FAERS Safety Report 24287844 (Version 1)
Quarter: 2024Q3

REPORT INFORMATION
  Report Type: Spontaneous
  Country: SG (occurrence: None)
  Receive Date: 20240905
  Receipt Date: 20240905
  Transmission Date: 20241017
  Serious: Yes (Death)
  Sender: ASTRAZENECA
  Company Number: 2024A200201

PATIENT

DRUGS (3)
  1. IMFINZI [Suspect]
     Active Substance: DURVALUMAB
     Indication: Biliary neoplasm
  2. GEMCITABINE [Concomitant]
     Active Substance: GEMCITABINE
     Indication: Biliary neoplasm
  3. CISPLATIN [Concomitant]
     Active Substance: CISPLATIN
     Indication: Biliary neoplasm

REACTIONS (1)
  - Malignant neoplasm progression [Fatal]
